FAERS Safety Report 25581353 (Version 1)
Quarter: 2025Q3

REPORT INFORMATION
  Report Type: Spontaneous
  Country: US (occurrence: US)
  Receive Date: 20250718
  Receipt Date: 20250718
  Transmission Date: 20251020
  Serious: No
  Sender: NOVO NORDISK
  Company Number: US-NOVOPROD-1371531

PATIENT

DRUGS (2)
  1. WEGOVY [Suspect]
     Active Substance: SEMAGLUTIDE
     Indication: Product used for unknown indication
     Route: 058
  2. DULCOLAX (BISACODYL) [Concomitant]
     Active Substance: BISACODYL
     Indication: Product used for unknown indication

REACTIONS (7)
  - Emotional disorder [Unknown]
  - Food aversion [Unknown]
  - Thinking abnormal [Unknown]
  - Depression [Unknown]
  - Weight increased [Unknown]
  - Abdominal distension [Unknown]
  - Constipation [Unknown]
